FAERS Safety Report 7747917-8 (Version None)
Quarter: 2011Q3

REPORT INFORMATION
  Report Type: 
  Country: None (occurrence: None)
  Receive Date: 20110913
  Receipt Date: 20110629
  Transmission Date: 20111222
  Serious: No
  Sender: FDA-Public Use
  Company Number: US-ALLERGAN-1108831US

PATIENT
  Age: 39 Year
  Sex: Female

DRUGS (2)
  1. LATISSE [Suspect]
     Indication: HYPOTRICHOSIS
     Dosage: 1 GTT, QHS
     Route: 061
     Dates: start: 20110626
  2. VISINE FOR RED EYES [Concomitant]
     Dosage: UNK

REACTIONS (2)
  - OCULAR HYPERAEMIA [None]
  - LACRIMATION INCREASED [None]
